FAERS Safety Report 14812338 (Version 1)
Quarter: 2018Q2

REPORT INFORMATION
  Report Type: Report from Study
  Country: US (occurrence: US)
  Receive Date: 20180425
  Receipt Date: 20180425
  Transmission Date: 20180711
  Serious: No
  Sender: FDA-Public Use
  Company Number: US-AMGEN-USASL2018044015

PATIENT
  Age: 79 Year
  Sex: Female

DRUGS (1)
  1. REPATHA [Suspect]
     Active Substance: EVOLOCUMAB
     Indication: HYPERCHOLESTEROLAEMIA
     Dosage: 420 MG, QMO
     Route: 065

REACTIONS (6)
  - Blood creatinine increased [Unknown]
  - Nocturia [Unknown]
  - Injection site pain [Recovered/Resolved]
  - Back pain [Unknown]
  - Nasal congestion [Unknown]
  - Insomnia [Unknown]
